FAERS Safety Report 13316038 (Version 2)
Quarter: 2017Q1

REPORT INFORMATION
  Report Type: Spontaneous
  Country: AU (occurrence: AU)
  Receive Date: 20170310
  Receipt Date: 20170314
  Transmission Date: 20170428
  Serious: Yes (Disabling, Other)
  Sender: FDA-Public Use
  Company Number: AU-009507513-1703AUS003261

PATIENT
  Sex: Male
  Weight: 20 kg

DRUGS (2)
  1. SERETIDE [Concomitant]
     Active Substance: FLUTICASONE PROPIONATE\SALMETEROL XINAFOATE
  2. SINGULAIR [Suspect]
     Active Substance: MONTELUKAST SODIUM
     Dosage: 4 MILLIGRAM (1 TABLET), DAILY
     Route: 048
     Dates: start: 201505, end: 201602

REACTIONS (8)
  - Anxiety [Recovering/Resolving]
  - Sleep terror [Recovering/Resolving]
  - Suicidal ideation [Recovering/Resolving]
  - Enuresis [Recovering/Resolving]
  - Aggression [Recovering/Resolving]
  - Restless legs syndrome [Recovering/Resolving]
  - Fatigue [Recovering/Resolving]
  - Depression [Recovering/Resolving]
